FAERS Safety Report 21771115 (Version 1)
Quarter: 2022Q4

REPORT INFORMATION
  Report Type: Spontaneous
  Country: US (occurrence: US)
  Receive Date: 20221223
  Receipt Date: 20221223
  Transmission Date: 20230113
  Serious: No
  Sender: FDA-Public Use
  Company Number: US-SA-SAC20221222000130

PATIENT
  Age: 67 Year
  Sex: Female
  Weight: 65.77 kg

DRUGS (10)
  1. DUPIXENT [Suspect]
     Active Substance: DUPILUMAB
     Indication: Nasal polyps
     Dosage: 300 MG, QOW
     Route: 058
     Dates: start: 202210
  2. XANAX [Concomitant]
     Active Substance: ALPRAZOLAM
  3. PRAVASTATIN SODIUM [Concomitant]
     Active Substance: PRAVASTATIN SODIUM
     Dosage: 20MG
  4. LASIX [Concomitant]
     Active Substance: FUROSEMIDE
  5. PAXIL [Concomitant]
     Active Substance: PAROXETINE HYDROCHLORIDE
  6. RAPAMUNE [Concomitant]
     Active Substance: SIROLIMUS
  7. PROGRAF [Concomitant]
     Active Substance: TACROLIMUS
  8. NORVASC [Concomitant]
     Active Substance: AMLODIPINE BESYLATE
  9. NADOLOL [Concomitant]
     Active Substance: NADOLOL
  10. GLIMEPIRIDE [Concomitant]
     Active Substance: GLIMEPIRIDE

REACTIONS (2)
  - Urinary tract infection bacterial [Not Recovered/Not Resolved]
  - Eye pruritus [Not Recovered/Not Resolved]

NARRATIVE: CASE EVENT DATE: 20221204
